FAERS Safety Report 15233163 (Version 2)
Quarter: 2018Q3

REPORT INFORMATION
  Report Type: Spontaneous
  Country: GB (occurrence: GB)
  Receive Date: 20180802
  Receipt Date: 20180905
  Transmission Date: 20181010
  Serious: Yes (Hospitalization, Other)
  Sender: FDA-Public Use
  Company Number: GB-TEVA-2018-GB-932840

PATIENT
  Age: 52 Year
  Sex: Female

DRUGS (6)
  1. CLOZARIL [Suspect]
     Active Substance: CLOZAPINE
     Route: 048
     Dates: start: 20180524
  2. CLOZARIL [Suspect]
     Active Substance: CLOZAPINE
     Dosage: 200 MILLIGRAM DAILY;
     Route: 048
     Dates: start: 201806
  3. DIAZEPAM. [Suspect]
     Active Substance: DIAZEPAM
     Indication: CONVULSION PROPHYLAXIS
     Dosage: 5 MILLIGRAM DAILY;
     Route: 065
     Dates: start: 20180626
  4. CLOZARIL [Suspect]
     Active Substance: CLOZAPINE
     Indication: SCHIZOPHRENIA
     Dosage: 175 MG, QD (75 MG AT AM AND 100 MG AT PM)
     Route: 048
     Dates: start: 20180626
  5. CLOZARIL [Suspect]
     Active Substance: CLOZAPINE
     Dosage: UNK
     Route: 048
     Dates: start: 20180528
  6. DIAZEPAM. [Suspect]
     Active Substance: DIAZEPAM
     Dosage: 10 MILLIGRAM DAILY;
     Route: 065

REACTIONS (14)
  - Joint dislocation [Unknown]
  - Myoclonus [Recovering/Resolving]
  - Polyuria [Unknown]
  - Antipsychotic drug level increased [Unknown]
  - Neutrophil count increased [Unknown]
  - Red cell distribution width increased [Unknown]
  - Platelet count increased [Unknown]
  - Sepsis [Unknown]
  - Haematocrit decreased [Unknown]
  - Mean cell haemoglobin concentration decreased [Unknown]
  - Pneumonia [Unknown]
  - Sedation [Not Recovered/Not Resolved]
  - Red blood cell count decreased [Unknown]
  - Haemoglobin decreased [Unknown]

NARRATIVE: CASE EVENT DATE: 201805
